FAERS Safety Report 6670761-X (Version None)
Quarter: 2010Q2

REPORT INFORMATION
  Report Type: 
  Country: None (occurrence: None)
  Receive Date: 20100407
  Receipt Date: 20100330
  Transmission Date: 20101027
  Serious: Yes (Death)
  Sender: FDA-Public Use
  Company Number: US-PURDUE-USA-2010-0042101

PATIENT
  Sex: Male
  Weight: 48.98 kg

DRUGS (3)
  1. OXYCONTIN [Suspect]
     Indication: LUNG CANCER METASTATIC
     Dosage: 80 MG, Q12H
     Dates: start: 20080201, end: 20100101
  2. OXYCONTIN [Suspect]
     Indication: INTERVERTEBRAL DISC PROTRUSION
  3. OXYCONTIN [Suspect]
     Indication: SPINAL OSTEOARTHRITIS

REACTIONS (1)
  - LUNG CANCER METASTATIC [None]
